FAERS Safety Report 5337315-9 (Version None)
Quarter: 2007Q2

REPORT INFORMATION
  Report Type: 
  Country: None (occurrence: None)
  Receive Date: 20070529
  Receipt Date: 20070516
  Transmission Date: 20071010
  Serious: Yes (Life-Threatening)
  Sender: FDA-Public Use
  Company Number: IT-SHR-00/00115-ITA

PATIENT
  Age: 49 Year
  Sex: Female

DRUGS (1)
  1. ULTRAVIST 370 [Suspect]
     Indication: COMPUTERISED TOMOGRAM
     Route: 042
     Dates: start: 20001123, end: 20001123

REACTIONS (2)
  - ANAPHYLACTIC SHOCK [None]
  - URTICARIA [None]
